FAERS Safety Report 5659054-7 (Version None)
Quarter: 2008Q1

REPORT INFORMATION
  Report Type: 
  Country: None (occurrence: None)
  Receive Date: 20080310
  Receipt Date: 20071114
  Transmission Date: 20080703
  Serious: No
  Sender: FDA-Public Use
  Company Number: US-BAYER-200713203BCC

PATIENT
  Sex: Male

DRUGS (1)
  1. ALEVE [Suspect]
     Indication: PROCEDURAL PAIN
     Route: 048

REACTIONS (1)
  - RENAL PAIN [None]
